FAERS Safety Report 18999326 (Version 2)
Quarter: 2021Q1

REPORT INFORMATION
  Report Type: Report from Study
  Country: DE (occurrence: DE)
  Receive Date: 20210311
  Receipt Date: 20210318
  Transmission Date: 20210420
  Serious: Yes (Hospitalization, Other)
  Sender: FDA-Public Use
  Company Number: DE-BRISTOL-MYERS SQUIBB COMPANY-BMS-2021-021022

PATIENT
  Age: 86 Year
  Sex: Female

DRUGS (1)
  1. NIVOLUMAB [Suspect]
     Active Substance: NIVOLUMAB
     Indication: MALIGNANT MELANOMA
     Dosage: 480 MILLIGRAM, Q4WK
     Route: 042
     Dates: start: 20190926

REACTIONS (7)
  - Rash maculo-papular [Not Recovered/Not Resolved]
  - Urinary tract infection [Recovered/Resolved]
  - Atrial fibrillation [Unknown]
  - Intertrigo [Not Recovered/Not Resolved]
  - Acute coronary syndrome [Recovered/Resolved]
  - Tinea pedis [Not Recovered/Not Resolved]
  - Pemphigus [Unknown]

NARRATIVE: CASE EVENT DATE: 20200113
